FAERS Safety Report 24739665 (Version 1)
Quarter: 2024Q4

REPORT INFORMATION
  Report Type: Spontaneous
  Country: US (occurrence: US)
  Receive Date: 20241216
  Receipt Date: 20241216
  Transmission Date: 20250115
  Serious: No
  Sender: SANOFI AVENTIS
  Company Number: US-SA-2024SA369663

PATIENT
  Age: 62 Year
  Sex: Female

DRUGS (11)
  1. DUPIXENT [Suspect]
     Active Substance: DUPILUMAB
     Indication: Dermatitis atopic
     Dosage: 300 MG OTHER
     Route: 058
     Dates: start: 20240326
  2. PROBIOTICS NOS [Concomitant]
     Active Substance: PROBIOTICS NOS
     Route: 048
  3. ALBUTEROL SULFATE [Concomitant]
     Active Substance: ALBUTEROL SULFATE
  4. CALCIUM ACETATE [Concomitant]
     Active Substance: CALCIUM ACETATE
  5. CLOBETASOL PROPIONATE [Concomitant]
     Active Substance: CLOBETASOL PROPIONATE
  6. IBUPROFEN [Concomitant]
     Active Substance: IBUPROFEN
     Route: 048
  7. EZETIMIBE [Concomitant]
     Active Substance: EZETIMIBE
     Route: 048
  8. DOXYCYCLINE HYCLATE [Concomitant]
     Active Substance: DOXYCYCLINE HYCLATE
  9. LORATADINE [Concomitant]
     Active Substance: LORATADINE
  10. MOUNJARO [Concomitant]
     Active Substance: TIRZEPATIDE
     Route: 058
  11. NYSTATIN [Concomitant]
     Active Substance: NYSTATIN

REACTIONS (1)
  - Dermatitis atopic [Unknown]

NARRATIVE: CASE EVENT DATE: 20241203
